FAERS Safety Report 7352490-2 (Version None)
Quarter: 2011Q1

REPORT INFORMATION
  Report Type: 
  Country: None (occurrence: None)
  Receive Date: 20110301
  Receipt Date: 20100413
  Transmission Date: 20110831
  Serious: Yes (Hospitalization, Other)
  Sender: FDA-Public Use
  Company Number: 231103USA

PATIENT
  Age: 27 Year
  Sex: Male
  Weight: 179.9 kg

DRUGS (6)
  1. FENTANYL [Suspect]
     Indication: SUICIDE ATTEMPT
     Dosage: ORAL (75 MCG), INTRAVENOUS (NOT OTHERWISE SPECIFIED), ORAL (25 MCG), INTRAVENOUS (NOT OTHERWISE SPEC
     Route: 042
     Dates: start: 20100315, end: 20100315
  2. FENTANYL [Suspect]
     Indication: SUICIDE ATTEMPT
     Dosage: ORAL (75 MCG), INTRAVENOUS (NOT OTHERWISE SPECIFIED), ORAL (25 MCG), INTRAVENOUS (NOT OTHERWISE SPEC
     Route: 042
     Dates: start: 20100315, end: 20100315
  3. PHENYTOIN [Suspect]
     Indication: SUICIDE ATTEMPT
     Dosage: ORAL
     Route: 048
     Dates: start: 20100315, end: 20100315
  4. TYLOX [Suspect]
     Indication: SUICIDE ATTEMPT
     Dosage: ORAL
     Route: 048
     Dates: start: 20100315, end: 20100315
  5. METHYLPHENIDATE HCL [Suspect]
     Indication: SUICIDE ATTEMPT
     Dosage: ORAL
     Route: 048
     Dates: start: 20100315, end: 20100315
  6. ADDERALL 10 [Suspect]
     Indication: SUICIDE ATTEMPT
     Dosage: ORAL
     Route: 048
     Dates: start: 20100315, end: 20100315

REACTIONS (8)
  - LOSS OF CONSCIOUSNESS [None]
  - CONVULSION [None]
  - INTENTIONAL OVERDOSE [None]
  - RESPIRATORY DEPRESSION [None]
  - INTENTIONAL DRUG MISUSE [None]
  - SUICIDE ATTEMPT [None]
  - POISONING [None]
  - IMPRISONMENT [None]
